FAERS Safety Report 10232314 (Version 1)
Quarter: 2014Q2

REPORT INFORMATION
  Report Type: Spontaneous
  Country: US (occurrence: US)
  Receive Date: 20140612
  Receipt Date: 20140612
  Transmission Date: 20141212
  Serious: Yes (Other)
  Sender: FDA-Public Use
  Company Number: US-MERCK-1406USA001013

PATIENT
  Sex: 0

DRUGS (1)
  1. JANUVIA [Suspect]
     Dosage: UNKNOWN

REACTIONS (3)
  - Jejunostomy [Unknown]
  - Gastrostomy [Unknown]
  - Wrong technique in drug usage process [Unknown]
